FAERS Safety Report 16858461 (Version 1)
Quarter: 2019Q3

REPORT INFORMATION
  Report Type: Spontaneous
  Country: US (occurrence: US)
  Receive Date: 20190926
  Receipt Date: 20190926
  Transmission Date: 20191005
  Serious: No
  Sender: FDA-Public Use
  Company Number: US-ROMARKLABS-2019-US-000047

PATIENT
  Age: 42 Year
  Sex: Female

DRUGS (2)
  1. UNSPECIFIED PROBIOTIC [Concomitant]
     Indication: PRODUCT USED FOR UNKNOWN INDICATION
     Route: 048
  2. ALINIA [Suspect]
     Active Substance: NITAZOXANIDE
     Indication: LIBIDO DECREASED
     Dosage: 1 TABLET TWICE DAILY
     Route: 048
     Dates: start: 201903

REACTIONS (2)
  - Abdominal discomfort [Not Recovered/Not Resolved]
  - Abdominal pain upper [Not Recovered/Not Resolved]

NARRATIVE: CASE EVENT DATE: 201903
